FAERS Safety Report 6197079-6 (Version None)
Quarter: 2009Q2

REPORT INFORMATION
  Report Type: 
  Country: None (occurrence: None)
  Receive Date: 20090518
  Receipt Date: 20090518
  Transmission Date: 20091009
  Serious: Yes (Death)
  Sender: FDA-Public Use
  Company Number: None

PATIENT
  Age: 56 Year
  Sex: Female

DRUGS (2)
  1. GEMCITABINE [Suspect]
     Indication: PANCREATIC CARCINOMA
     Dosage: WEIGHT BASED
     Dates: start: 20081231
  2. AVASTIN [Suspect]
     Indication: PANCREATIC CARCINOMA
     Dosage: WEIGHT BASED
     Dates: start: 20081231

REACTIONS (12)
  - ARTERIAL HAEMORRHAGE [None]
  - COAGULOPATHY [None]
  - CONVULSION [None]
  - ENCEPHALOPATHY [None]
  - HEPATIC FAILURE [None]
  - HYPERBILIRUBINAEMIA [None]
  - HYPOALBUMINAEMIA [None]
  - INTESTINAL OBSTRUCTION [None]
  - MULTI-ORGAN FAILURE [None]
  - PANCREATIC LEAK [None]
  - POST PROCEDURAL BILE LEAK [None]
  - SEPSIS [None]
